FAERS Safety Report 6146075-3 (Version None)
Quarter: 2009Q2

REPORT INFORMATION
  Report Type: 
  Country: None (occurrence: None)
  Receive Date: 20090407
  Receipt Date: 20090330
  Transmission Date: 20091009
  Serious: Yes (Other)
  Sender: FDA-Public Use
  Company Number: DE-AMGEN-QUU340604

PATIENT
  Sex: Female

DRUGS (1)
  1. NEULASTA [Suspect]
     Indication: PRE-EXISTING DISEASE
     Route: 058
     Dates: end: 20090329

REACTIONS (3)
  - CIRCULATORY COLLAPSE [None]
  - HEAD INJURY [None]
  - LOSS OF CONSCIOUSNESS [None]
